FAERS Safety Report 16946446 (Version 1)
Quarter: 2019Q4

REPORT INFORMATION
  Report Type: Report from Study
  Country: US (occurrence: US)
  Receive Date: 20191022
  Receipt Date: 20191022
  Transmission Date: 20200122
  Serious: Yes (Other)
  Sender: FDA-Public Use
  Company Number: US-BAUSCH-BL-2019-058240

PATIENT
  Age: 42 Year
  Sex: Male

DRUGS (1)
  1. SILIQ [Suspect]
     Active Substance: BRODALUMAB
     Indication: PRODUCT USED FOR UNKNOWN INDICATION
     Dosage: PFS: PRE-FILLED SYRINGE (210 MG/ 1.5 ML) AS DIRECTED
     Route: 065
     Dates: end: 201909

REACTIONS (2)
  - Intentional product use issue [Unknown]
  - Varicose vein [Unknown]

NARRATIVE: CASE EVENT DATE: 201910
